FAERS Safety Report 24606432 (Version 2)
Quarter: 2024Q4

REPORT INFORMATION
  Report Type: Spontaneous
  Country: CA (occurrence: CA)
  Receive Date: 20241112
  Receipt Date: 20241126
  Transmission Date: 20250114
  Serious: Yes (Hospitalization)
  Sender: TEVA
  Company Number: CA-TEVA-VS-3262450

PATIENT
  Age: 58 Year
  Sex: Male

DRUGS (11)
  1. ZOLEDRONIC ACID [Suspect]
     Active Substance: ZOLEDRONIC ACID
     Indication: Hypercalcaemia
     Route: 042
     Dates: start: 202002, end: 202110
  2. ETOPOSIDE [Suspect]
     Active Substance: ETOPOSIDE
     Indication: Small cell lung cancer extensive stage
     Dosage: ON DAY 1-3
     Route: 048
     Dates: start: 202010, end: 202101
  3. ETOPOSIDE [Suspect]
     Active Substance: ETOPOSIDE
     Indication: Small cell lung cancer extensive stage
     Dosage: ON DAY 1-3
     Route: 048
     Dates: start: 201911
  4. ETOPOSIDE [Suspect]
     Active Substance: ETOPOSIDE
     Indication: Small cell lung cancer extensive stage
     Dosage: ON DAY 1-3
     Route: 048
  5. CARBOPLATIN [Suspect]
     Active Substance: CARBOPLATIN
     Indication: Small cell lung cancer extensive stage
     Dosage: ON DAY 1
     Route: 042
     Dates: start: 201911
  6. CARBOPLATIN [Suspect]
     Active Substance: CARBOPLATIN
     Indication: Small cell lung cancer extensive stage
     Dosage: ON DAY 1
     Route: 042
     Dates: start: 202010, end: 202101
  7. CARBOPLATIN [Suspect]
     Active Substance: CARBOPLATIN
     Indication: Small cell lung cancer extensive stage
     Dosage: ON DAY 1
     Route: 042
  8. ATEZOLIZUMAB [Suspect]
     Active Substance: ATEZOLIZUMAB
     Indication: Small cell lung cancer extensive stage
     Dosage: ON DAY1 EVERY 21 DAYS
     Route: 042
     Dates: start: 201911
  9. ATEZOLIZUMAB [Suspect]
     Active Substance: ATEZOLIZUMAB
     Indication: Small cell lung cancer extensive stage
     Route: 042
     Dates: start: 202308
  10. ATEZOLIZUMAB [Suspect]
     Active Substance: ATEZOLIZUMAB
     Indication: Small cell lung cancer extensive stage
     Dosage: EVERY 3-4 MONTHS
     Route: 042
     Dates: start: 2021, end: 202301
  11. ATEZOLIZUMAB [Suspect]
     Active Substance: ATEZOLIZUMAB
     Indication: Small cell lung cancer extensive stage
     Dosage: ON DAY 1 EVERY 21 DAYS
     Route: 042
     Dates: start: 202010, end: 202101

REACTIONS (4)
  - Febrile neutropenia [Unknown]
  - Osteonecrosis of jaw [Unknown]
  - Anaemia [Unknown]
  - Hypertransaminasaemia [Recovered/Resolved]
